FAERS Safety Report 15035315 (Version 1)
Quarter: 2018Q2

REPORT INFORMATION
  Report Type: Spontaneous
  Country: US (occurrence: US)
  Receive Date: 20180620
  Receipt Date: 20180620
  Transmission Date: 20180711
  Serious: Yes (Death)
  Sender: FDA-Public Use
  Company Number: US-ROCHE-2142477

PATIENT
  Age: 27 Year
  Sex: Male

DRUGS (4)
  1. DEXAMETHASON [Concomitant]
     Active Substance: DEXAMETHASONE
  2. ZELBORAF [Suspect]
     Active Substance: VEMURAFENIB
     Indication: CARCINOID TUMOUR
     Dosage: 4 TABS
     Route: 048
     Dates: start: 201802, end: 201804
  3. COTELLIC [Suspect]
     Active Substance: COBIMETINIB
     Indication: CARCINOID TUMOUR
     Dosage: 3 TABS
     Route: 048
     Dates: start: 201802, end: 201804
  4. LEVOTHYROXIN [Concomitant]
     Active Substance: LEVOTHYROXINE

REACTIONS (1)
  - Death [Fatal]

NARRATIVE: CASE EVENT DATE: 201804
